FAERS Safety Report 18355662 (Version 14)
Quarter: 2025Q2

REPORT INFORMATION
  Report Type: Spontaneous
  Country: DE (occurrence: DE)
  Receive Date: 20201007
  Receipt Date: 20250520
  Transmission Date: 20250717
  Serious: Yes (Other)
  Sender: Unknown Manufacturer
  Company Number: None

PATIENT

DRUGS (12)
  1. METOPROLOL SUCCINATE [Suspect]
     Active Substance: METOPROLOL SUCCINATE
     Indication: Blood pressure increased
     Route: 065
     Dates: start: 2020, end: 202007
  2. METOPROLOL SUCCINATE [Suspect]
     Active Substance: METOPROLOL SUCCINATE
     Indication: Hypertension
     Route: 048
  3. RAMIPRIL [Suspect]
     Active Substance: RAMIPRIL
     Indication: Blood pressure increased
     Route: 048
     Dates: start: 202003, end: 202003
  4. SPINRAZA [Suspect]
     Active Substance: NUSINERSEN
     Indication: Spinal muscular atrophy
     Route: 037
     Dates: start: 20190527
  5. SPINRAZA [Suspect]
     Active Substance: NUSINERSEN
     Route: 037
     Dates: start: 20190524
  6. CLINDAMYCIN PHOSPHATE [Suspect]
     Active Substance: CLINDAMYCIN PHOSPHATE
     Indication: Osteitis
     Dates: start: 20250325, end: 20250403
  7. AMITRIPTYLINE [Concomitant]
     Active Substance: AMITRIPTYLINE
     Indication: Pain
     Route: 065
  8. AMITRIPTYLINE [Concomitant]
     Active Substance: AMITRIPTYLINE
     Indication: Sleep disorder
  9. MORPHINE SULFATE [Concomitant]
     Active Substance: MORPHINE SULFATE
     Indication: Pain
     Route: 065
  10. OMEPRAZOLE [Concomitant]
     Active Substance: OMEPRAZOLE
     Indication: Gastritis
     Route: 065
  11. FINASTERIDE [Concomitant]
     Active Substance: FINASTERIDE
     Indication: Prostatic disorder
     Route: 065
  12. COMIRNATY [Concomitant]
     Indication: COVID-19 prophylaxis
     Route: 065

REACTIONS (21)
  - Hypertension [Recovered/Resolved]
  - Post lumbar puncture syndrome [Recovered/Resolved]
  - Motor dysfunction [Recovered/Resolved]
  - Eye haemorrhage [Recovered/Resolved]
  - Epistaxis [Recovered/Resolved]
  - Migraine with aura [Recovered/Resolved]
  - Head discomfort [Unknown]
  - Asthenia [Recovered/Resolved]
  - Musculoskeletal disorder [Recovered/Resolved]
  - Exertional headache [Not Recovered/Not Resolved]
  - Muscular weakness [Not Recovered/Not Resolved]
  - Sinusitis [Recovered/Resolved]
  - Nasal septum disorder [Unknown]
  - Fall [Recovered/Resolved]
  - Speech disorder [Recovered/Resolved]
  - Fatigue [Recovered/Resolved]
  - Dizziness [Recovered/Resolved]
  - Accidental underdose [Recovered/Resolved]
  - Drug ineffective [Recovered/Resolved]
  - Arrhythmia [Unknown]
  - Drug intolerance [Unknown]

NARRATIVE: CASE EVENT DATE: 20190924
